FAERS Safety Report 21640171 (Version 1)
Quarter: 2022Q4

REPORT INFORMATION
  Report Type: Spontaneous
  Country: US (occurrence: US)
  Receive Date: 20221124
  Receipt Date: 20221124
  Transmission Date: 20230112
  Serious: No
  Sender: FDA-Public Use
  Company Number: US-SA-SAC20221121001515

PATIENT
  Sex: Female
  Weight: 56 kg

DRUGS (1)
  1. DUPIXENT [Suspect]
     Active Substance: DUPILUMAB
     Indication: Dermatitis atopic
     Dosage: 300 MG, QOW
     Route: 058

REACTIONS (5)
  - Injection site rash [Unknown]
  - Injection site discolouration [Unknown]
  - Disorientation [Unknown]
  - Nasopharyngitis [Unknown]
  - Injection site erythema [Unknown]
